FAERS Safety Report 4329962-8 (Version None)
Quarter: 2004Q2

REPORT INFORMATION
  Report Type: 
  Country: None (occurrence: None)
  Receive Date: 20040401
  Receipt Date: 20020703
  Transmission Date: 20050107
  Serious: Yes (Hospitalization)
  Sender: FDA-Public Use
  Company Number: US-MERCK-0207USA00491

PATIENT
  Age: 63 Year
  Sex: Female
  Weight: 61 kg

DRUGS (22)
  1. ALBUTEROL SULFATE [Concomitant]
     Route: 055
     Dates: start: 20000101, end: 20010401
  2. FOSAMAX [Concomitant]
     Route: 048
     Dates: start: 19990101
  3. AMLODIPINE BESYLATE [Concomitant]
     Indication: BLOOD PRESSURE
     Route: 048
     Dates: start: 19990101, end: 20010401
  4. ASPIRIN [Concomitant]
     Route: 048
     Dates: start: 20000101
  5. ATORVASTATIN CALCIUM [Concomitant]
     Route: 065
  6. BECLOMETHASONE DIPROPIONATE [Concomitant]
     Route: 055
     Dates: start: 20000101
  7. LOTENSIN [Concomitant]
     Indication: HYPERTENSION
     Route: 065
     Dates: start: 19910101
  8. CALCIUM CARBONATE [Concomitant]
     Indication: BONE DISORDER
     Route: 048
     Dates: start: 20000101
  9. BAYCOL [Concomitant]
     Route: 065
     Dates: start: 20001103
  10. DIPHENHYDRAMINE HYDROCHLORIDE [Concomitant]
     Route: 048
     Dates: start: 20000101, end: 20010101
  11. ESTROGENS (UNSPECIFIED) [Concomitant]
     Indication: HORMONE REPLACEMENT THERAPY
     Route: 048
     Dates: start: 19990101, end: 20010401
  12. FOLIC ACID [Concomitant]
     Indication: ANAEMIA
     Route: 048
     Dates: start: 20000101, end: 20010401
  13. HYDRODIURIL [Concomitant]
     Indication: SWELLING
     Route: 048
     Dates: start: 20000101, end: 20010522
  14. HYDROXYCHLOROQUINE SULFATE [Concomitant]
     Route: 048
     Dates: start: 19990101
  15. INDOCIN [Concomitant]
     Indication: RHEUMATOID ARTHRITIS
     Route: 065
     Dates: start: 20030101
  16. IPRATROPIUM BROMIDE [Concomitant]
     Route: 065
     Dates: start: 19990101
  17. ISOSORBIDE MONONITRATE [Concomitant]
     Route: 048
     Dates: start: 19990101
  18. MISOPROSTOL [Concomitant]
     Route: 048
     Dates: start: 19990101
  19. NAPROXEN [Concomitant]
     Indication: ARTHRITIS
     Route: 048
     Dates: start: 19990101, end: 20010101
  20. PREDNISONE [Concomitant]
     Indication: SWELLING
     Route: 048
     Dates: start: 19930101
  21. VIOXX [Suspect]
     Indication: RHEUMATOID ARTHRITIS
     Route: 048
     Dates: start: 20000714, end: 20010814
  22. VIOXX [Suspect]
     Route: 048
     Dates: start: 20010801, end: 20010901

REACTIONS (59)
  - ACUTE RESPIRATORY FAILURE [None]
  - ANAEMIA [None]
  - ANGINA UNSTABLE [None]
  - ASTHENIA [None]
  - ATROPHY [None]
  - AZOTAEMIA [None]
  - BLOOD PRESSURE INCREASED [None]
  - BRAIN MASS [None]
  - BUNDLE BRANCH BLOCK RIGHT [None]
  - CARDIAC FAILURE CONGESTIVE [None]
  - CARDIOMYOPATHY [None]
  - CATARACT [None]
  - CHRONIC SINUSITIS [None]
  - CONFUSIONAL STATE [None]
  - DEHYDRATION [None]
  - DELIRIUM [None]
  - DEPRESSION [None]
  - DIZZINESS [None]
  - DRUG HYPERSENSITIVITY [None]
  - ESSENTIAL HYPERTENSION [None]
  - FALL [None]
  - FATIGUE [None]
  - GANGRENE [None]
  - GASTRIC ULCER [None]
  - GASTRITIS [None]
  - HELICOBACTER INFECTION [None]
  - HERPES ZOSTER [None]
  - HYPOAESTHESIA [None]
  - HYPOKALAEMIA [None]
  - HYPOVOLAEMIA [None]
  - INTERSTITIAL LUNG DISEASE [None]
  - LEG AMPUTATION [None]
  - LUNG INFILTRATION [None]
  - MARKEDLY REDUCED DIETARY INTAKE [None]
  - MASTITIS [None]
  - MENINGIOMA [None]
  - MUSCLE CRAMP [None]
  - MYOCARDIAL INFARCTION [None]
  - MYOPATHY [None]
  - NAUSEA [None]
  - OESOPHAGITIS [None]
  - ORTHOSTATIC HYPOTENSION [None]
  - PARAESTHESIA [None]
  - PERIPHERAL OCCLUSIVE DISEASE [None]
  - PNEUMONIA [None]
  - PRURITUS [None]
  - PULMONARY EMBOLISM [None]
  - RENAL CYST [None]
  - RENAL FAILURE ACUTE [None]
  - RESPIRATORY DISTRESS [None]
  - SINUS TACHYCARDIA [None]
  - SYNCOPE [None]
  - TRANSIENT ISCHAEMIC ATTACK [None]
  - UPPER GASTROINTESTINAL HAEMORRHAGE [None]
  - VASCULITIS [None]
  - VENTILATION/PERFUSION SCAN ABNORMAL [None]
  - VISUAL ACUITY REDUCED [None]
  - VOMITING [None]
  - WEIGHT DECREASED [None]
